FAERS Safety Report 8103450-5 (Version None)
Quarter: 2012Q1

REPORT INFORMATION
  Report Type: 
  Country: None (occurrence: None)
  Receive Date: 20120127
  Receipt Date: 20120118
  Transmission Date: 20120608
  Serious: Yes (Other)
  Sender: FDA-Public Use
  Company Number: KAD201201-000033

PATIENT
  Age: 58 Year
  Sex: Female

DRUGS (2)
  1. PEGASYS [Suspect]
     Dosage: 180 MCG PER WEEK
     Dates: start: 20111126
  2. RIBAVIRIN [Suspect]
     Dosage: 600 MG TWO TIMES A DAY
     Dates: start: 20111126

REACTIONS (7)
  - EPISTAXIS [None]
  - NAUSEA [None]
  - PAIN [None]
  - BLOODY DISCHARGE [None]
  - HAEMOPTYSIS [None]
  - HEPATITIS [None]
  - HAEMATOCHEZIA [None]
